FAERS Safety Report 23561725 (Version 1)
Quarter: 2024Q1

REPORT INFORMATION
  Report Type: Spontaneous
  Country: CA (occurrence: CA)
  Receive Date: 20240225
  Receipt Date: 20240225
  Transmission Date: 20240410
  Serious: Yes (Hospitalization, Other)
  Sender: FDA-Public Use
  Company Number: CA-BAYER-2024A026897

PATIENT
  Age: 85 Year
  Sex: Male
  Weight: 87 kg

DRUGS (8)
  1. XARELTO [Suspect]
     Active Substance: RIVAROXABAN
     Indication: Product used for unknown indication
     Dosage: 20 MG, QD
     Route: 048
  2. DUTASTERIDE [Concomitant]
     Active Substance: DUTASTERIDE
  3. POLYETHYLENE GLYCOLS [Concomitant]
     Active Substance: POLYETHYLENE GLYCOLS
  4. ACETAMINOPHEN [Concomitant]
     Active Substance: ACETAMINOPHEN
  5. FELODIPINE [Concomitant]
     Active Substance: FELODIPINE
  6. TAMSULOSIN [Concomitant]
     Active Substance: TAMSULOSIN
  7. TELMISARTAN [Concomitant]
     Active Substance: TELMISARTAN
  8. MORPHINE [Concomitant]
     Active Substance: MORPHINE

REACTIONS (3)
  - Duodenal ulcer [Unknown]
  - Upper gastrointestinal haemorrhage [Recovered/Resolved]
  - Helicobacter gastritis [Unknown]
